FAERS Safety Report 9150625 (Version 1)
Quarter: 2013Q1

REPORT INFORMATION
  Report Type: Spontaneous
  Country: US (occurrence: None)
  Receive Date: 20130305
  Receipt Date: 20130305
  Transmission Date: 20140127
  Serious: Yes (Other)
  Sender: FDA-Public Use
  Company Number: None

PATIENT
  Age: 44 Year
  Sex: Female
  Weight: 63.5 kg

DRUGS (1)
  1. BUPROPION [Suspect]
     Indication: DEPRESSION
     Route: 048
     Dates: start: 20130213, end: 20130304

REACTIONS (9)
  - Suicidal ideation [None]
  - Depression [None]
  - Disturbance in attention [None]
  - Fatigue [None]
  - Anxiety [None]
  - Fear [None]
  - Paranoia [None]
  - Product substitution issue [None]
  - Drug ineffective [None]
